FAERS Safety Report 25235104 (Version 1)
Quarter: 2025Q2

REPORT INFORMATION
  Report Type: Spontaneous
  Country: US (occurrence: US)
  Receive Date: 20250424
  Receipt Date: 20250424
  Transmission Date: 20250717
  Serious: Yes (Death, Hospitalization, Other)
  Sender: AMGEN
  Company Number: US-AMGEN-USASP2025076856

PATIENT
  Age: 53 Year
  Sex: Female

DRUGS (3)
  1. PREDNISONE [Suspect]
     Active Substance: PREDNISONE
     Indication: Immunosuppressant drug therapy
     Route: 065
  2. TACROLIMUS [Concomitant]
     Active Substance: TACROLIMUS
  3. MYCOPHENOLATE MOFETIL [Concomitant]
     Active Substance: MYCOPHENOLATE MOFETIL

REACTIONS (9)
  - Multiple organ dysfunction syndrome [Fatal]
  - Dyspnoea [Unknown]
  - Cough [Unknown]
  - Aortic valve incompetence [Unknown]
  - Middle cerebral artery stroke [Unknown]
  - Degenerative multivalvular disease [Unknown]
  - Prosthetic valve endocarditis [Unknown]
  - Cardiac valve abscess [Unknown]
  - Legionella infection [Recovering/Resolving]
